FAERS Safety Report 7809256-6 (Version None)
Quarter: 2011Q4

REPORT INFORMATION
  Report Type: 
  Country: None (occurrence: None)
  Receive Date: 20111012
  Receipt Date: 20111005
  Transmission Date: 20120403
  Serious: Yes (Hospitalization, Other)
  Sender: FDA-Public Use
  Company Number: PT-ABBOTT-11P-130-0844252-00

PATIENT
  Age: 46 Year
  Sex: Male

DRUGS (15)
  1. ALLOPURINOL [Concomitant]
     Indication: PRODUCT USED FOR UNKNOWN INDICATION
  2. ENBREL [Suspect]
     Indication: PSORIASIS
  3. HUMIRA [Suspect]
  4. GOLIMUMAB [Suspect]
     Indication: SERONEGATIVE ARTHRITIS
     Dosage: RECEIVED ONLY TWO DOSES-50MG MONTHLY
     Route: 065
     Dates: start: 20110501, end: 20110713
  5. HUMIRA [Suspect]
     Indication: SERONEGATIVE ARTHRITIS
     Dates: start: 20101201, end: 20110301
  6. HUMIRA [Suspect]
     Indication: SPONDYLOARTHROPATHY
  7. CYCLOSPORINE [Concomitant]
     Indication: PRODUCT USED FOR UNKNOWN INDICATION
     Dosage: FOR THREE YEARS
  8. ENBREL [Suspect]
     Indication: LEUKOCYTE ANTIGEN B-27 POSITIVE
  9. GOLIMUMAB [Suspect]
     Indication: LEUKOCYTE ANTIGEN B-27 POSITIVE
  10. VOLTAREN [Concomitant]
     Indication: PRODUCT USED FOR UNKNOWN INDICATION
  11. ENBREL [Suspect]
  12. GOLIMUMAB [Suspect]
     Indication: SPONDYLOARTHROPATHY
  13. ENBREL [Suspect]
     Indication: SERONEGATIVE ARTHRITIS
     Dates: start: 20060101
  14. UNSPECIFIED ANTI-INFLAMMATORY DRUG [Concomitant]
     Indication: PRODUCT USED FOR UNKNOWN INDICATION
  15. GOLIMUMAB [Suspect]

REACTIONS (5)
  - DEMYELINATION [None]
  - SPONDYLOARTHROPATHY [None]
  - DRUG INEFFECTIVE [None]
  - MONOPARESIS [None]
  - ASTHENIA [None]
